FAERS Safety Report 16370253 (Version 1)
Quarter: 2019Q2

REPORT INFORMATION
  Report Type: Spontaneous
  Country: CO (occurrence: CO)
  Receive Date: 20190530
  Receipt Date: 20190530
  Transmission Date: 20190711
  Serious: Yes (Life-Threatening, Hospitalization, Other)
  Sender: FDA-Public Use
  Company Number: CO-ALKEM LABORATORIES LIMITED-CO-ALKEM-2019-04532

PATIENT
  Age: 83 Year
  Sex: Male
  Weight: 72 kg

DRUGS (8)
  1. DUTASTERIDE. [Concomitant]
     Active Substance: DUTASTERIDE
     Indication: BENIGN PROSTATIC HYPERPLASIA
     Dosage: UNKNOWN
     Route: 065
  2. SERTRALINE [Concomitant]
     Active Substance: SERTRALINE HYDROCHLORIDE
     Indication: DEMENTIA
     Dosage: 50 MILLIGRAM, OD
     Route: 065
  3. QUETIAPINE FUMARATE. [Suspect]
     Active Substance: QUETIAPINE FUMARATE
     Dosage: 5 DOSAGE FORM, OD
     Route: 048
     Dates: start: 20190203, end: 20190206
  4. MEMANTINE. [Concomitant]
     Active Substance: MEMANTINE
     Indication: DEMENTIA
     Dosage: 20 MILLIGRAM, OD
     Route: 065
  5. QUETIAPINE FUMARATE. [Suspect]
     Active Substance: QUETIAPINE FUMARATE
     Indication: DEMENTIA
     Dosage: 150 MG/MG, OD
     Route: 048
     Dates: end: 20190203
  6. PRAZOSIN. [Concomitant]
     Active Substance: PRAZOSIN
     Indication: BENIGN PROSTATIC HYPERPLASIA
     Dosage: 1 MILLIGRAM, OD
     Route: 065
     Dates: end: 201902
  7. PREGABALIN. [Concomitant]
     Active Substance: PREGABALIN
     Indication: DEMENTIA
     Dosage: 75 MILLIGRAM, OD
     Route: 065
  8. LEVOTHYROXINE. [Concomitant]
     Active Substance: LEVOTHYROXINE
     Indication: HYPERTHYROIDISM
     Dosage: 50 MICROGRAM, OD
     Route: 065

REACTIONS (5)
  - Loss of consciousness [Recovered/Resolved]
  - Inappropriate antidiuretic hormone secretion [Recovered/Resolved]
  - Craniocerebral injury [Recovered/Resolved]
  - Blood pressure decreased [Recovered/Resolved]
  - Soft tissue injury [Recovered/Resolved]

NARRATIVE: CASE EVENT DATE: 201902
